FAERS Safety Report 13011166 (Version 1)
Quarter: 2016Q4

REPORT INFORMATION
  Report Type: Report from Study
  Country: US (occurrence: US)
  Receive Date: 20161208
  Receipt Date: 20161208
  Transmission Date: 20170207
  Serious: Yes (Hospitalization)
  Sender: FDA-Public Use
  Company Number: US-ASTRAZENECA-2016SF27428

PATIENT
  Age: 24536 Day
  Sex: Female
  Weight: 94.4 kg

DRUGS (5)
  1. GLYCOPYRRONIUM + FORMOTEROL FUMARATE INHALATION AEROSOL [Suspect]
     Active Substance: GLYCOPYRRONIUM\FORMOTEROL FUMARATE
     Indication: CHRONIC OBSTRUCTIVE PULMONARY DISEASE
     Dosage: 14.4/9.6 UG EX-ACTUATOR
     Route: 055
     Dates: end: 20161129
  2. ALEVE [Concomitant]
     Active Substance: NAPROXEN SODIUM
     Indication: OSTEOARTHRITIS
     Dosage: AS NEEDED, ONGOING
     Route: 048
     Dates: start: 2013
  3. BUSPIRONE [Concomitant]
     Active Substance: BUSPIRONE HYDROCHLORIDE
     Indication: ANXIETY
     Dosage: ONGOING
     Route: 048
     Dates: start: 20160904
  4. IBUPROFEN. [Concomitant]
     Active Substance: IBUPROFEN
     Indication: ARTHRITIS CLIMACTERIC
     Dosage: AS NEEDED, ONGOING
     Route: 048
     Dates: start: 2011
  5. NORCO [Concomitant]
     Active Substance: ACETAMINOPHEN\HYDROCODONE BITARTRATE
     Indication: MUSCULOSKELETAL PAIN
     Dosage: AS NEEDED, ONGOING
     Route: 048
     Dates: start: 20160815

REACTIONS (1)
  - Acute myocardial infarction [Recovered/Resolved]

NARRATIVE: CASE EVENT DATE: 20161128
